FAERS Safety Report 8258223-X (Version None)
Quarter: 2012Q2

REPORT INFORMATION
  Report Type: 
  Country: None (occurrence: None)
  Receive Date: 20120404
  Receipt Date: 20120328
  Transmission Date: 20120825
  Serious: Yes (Disabling)
  Sender: FDA-Public Use
  Company Number: PHHY2012AU027568

PATIENT
  Sex: Female

DRUGS (2)
  1. VOLTAREN [Suspect]
     Dosage: 11.6 MG/G
  2. VOLTAREN [Suspect]
     Route: 048

REACTIONS (1)
  - BLINDNESS TRANSIENT [None]
